APPROVED DRUG PRODUCT: SATRIC
Active Ingredient: METRONIDAZOLE
Strength: 250MG
Dosage Form/Route: TABLET;ORAL
Application: A070029 | Product #001
Applicant: SAVAGE LABORATORIES INC DIV ALTANA INC
Approved: Mar 19, 1985 | RLD: No | RS: No | Type: DISCN